FAERS Safety Report 19190527 (Version 2)
Quarter: 2021Q2

REPORT INFORMATION
  Report Type: Spontaneous
  Country: CA (occurrence: CA)
  Receive Date: 20210428
  Receipt Date: 20210429
  Transmission Date: 20210717
  Serious: Yes (Hospitalization)
  Sender: FDA-Public Use
  Company Number: CA-GILEAD-2021-0526660

PATIENT
  Age: 53 Year
  Sex: Female
  Weight: 59 kg

DRUGS (4)
  1. VEKLURY [Suspect]
     Active Substance: REMDESIVIR
     Indication: PRODUCT USED FOR UNKNOWN INDICATION
     Dosage: 200 MG 4 PM
     Route: 042
     Dates: start: 20210420
  2. VEKLURY [Suspect]
     Active Substance: REMDESIVIR
     Dosage: 100 UNK
     Route: 042
  3. VEKLURY [Suspect]
     Active Substance: REMDESIVIR
     Dosage: 200 MG 10PM
     Route: 042
     Dates: start: 20210420
  4. DEXAMETHASONE. [Concomitant]
     Active Substance: DEXAMETHASONE

REACTIONS (1)
  - Overdose [Recovered/Resolved]

NARRATIVE: CASE EVENT DATE: 20210420
